FAERS Safety Report 11917462 (Version 1)
Quarter: 2016Q1

REPORT INFORMATION
  Report Type: Spontaneous
  Country: US (occurrence: US)
  Receive Date: 20160114
  Receipt Date: 20160114
  Transmission Date: 20160526
  Serious: No
  Sender: FDA-Public Use
  Company Number: US-MEDA-2015020078

PATIENT
  Age: 66 Year
  Sex: Male
  Weight: 78 kg

DRUGS (3)
  1. MUSE [Suspect]
     Active Substance: ALPROSTADIL
     Route: 066
     Dates: start: 2014
  2. JANUMET XR [Concomitant]
     Active Substance: METFORMIN HYDROCHLORIDE\SITAGLIPTIN PHOSPHATE
     Indication: TYPE 2 DIABETES MELLITUS
     Route: 048
  3. NEXIUM [Concomitant]
     Active Substance: ESOMEPRAZOLE MAGNESIUM
     Indication: GASTROOESOPHAGEAL REFLUX DISEASE
     Route: 048

REACTIONS (1)
  - Penile pain [Recovered/Resolved]
